FAERS Safety Report 11914962 (Version 1)
Quarter: 2016Q1

REPORT INFORMATION
  Report Type: Spontaneous
  Country: IT (occurrence: IT)
  Receive Date: 20160113
  Receipt Date: 20160113
  Transmission Date: 20160526
  Serious: Yes (Other)
  Sender: FDA-Public Use
  Company Number: IT-BRISTOL-MYERS SQUIBB COMPANY-BMS-2015-093026

PATIENT
  Age: 77 Year
  Sex: Male

DRUGS (2)
  1. FIDAXOMICIN [Interacting]
     Active Substance: FIDAXOMICIN
     Indication: CLOSTRIDIUM DIFFICILE INFECTION
     Route: 065
  2. WARFARIN SODIUM. [Suspect]
     Active Substance: WARFARIN SODIUM
     Indication: HEART VALVE REPLACEMENT
     Route: 065

REACTIONS (4)
  - Drug interaction [Unknown]
  - Drug ineffective [Unknown]
  - Diarrhoea [Unknown]
  - Clostridium difficile infection [Unknown]
